FAERS Safety Report 15663883 (Version 1)
Quarter: 2018Q4

REPORT INFORMATION
  Report Type: Spontaneous
  Country: US (occurrence: US)
  Receive Date: 20181128
  Receipt Date: 20181128
  Transmission Date: 20190205
  Serious: No
  Sender: FDA-Public Use
  Company Number: US-ASTRAZENECA-2018SF43856

PATIENT
  Sex: Female
  Weight: 65.8 kg

DRUGS (1)
  1. BYDUREON BCISE [Suspect]
     Active Substance: EXENATIDE
     Indication: TYPE 2 DIABETES MELLITUS
     Route: 058
     Dates: start: 20180910

REACTIONS (4)
  - Glycosylated haemoglobin decreased [Unknown]
  - Injection site pain [Unknown]
  - Injection site bruising [Unknown]
  - Injection site extravasation [Unknown]
